FAERS Safety Report 6371365-9 (Version None)
Quarter: 2009Q3

REPORT INFORMATION
  Report Type: 
  Country: None (occurrence: None)
  Receive Date: 20090923
  Receipt Date: 20090917
  Transmission Date: 20100115
  Serious: Yes (Other)
  Sender: FDA-Public Use
  Company Number: US-GILEAD-2009-0024240

PATIENT
  Sex: Male
  Weight: 86.26 kg

DRUGS (20)
  1. LETAIRIS [Suspect]
     Indication: PULMONARY ARTERIAL HYPERTENSION
     Route: 048
     Dates: start: 20080714
  2. VIAGRA [Concomitant]
  3. COUMADIN [Concomitant]
  4. BUMEX [Concomitant]
  5. ADVAIR HFA [Concomitant]
  6. OXYGEN [Concomitant]
  7. CLONAZEPAM [Concomitant]
  8. POTASSIUM CHLORIDE [Concomitant]
  9. THIAMINE HCL [Concomitant]
  10. PRILOSEC [Concomitant]
  11. NABUMETONE [Concomitant]
  12. SIMVASTATIN [Concomitant]
  13. MAG-OX [Concomitant]
  14. MULTI-VITAMIN [Concomitant]
  15. DARVOCET-N 100 [Concomitant]
  16. FLOMAX [Concomitant]
  17. FLEXERIL [Concomitant]
  18. TERBINAFINE CREAM [Concomitant]
  19. NATURAL TEARS DROPS [Concomitant]
  20. FOLIC ACID [Concomitant]

REACTIONS (1)
  - LOSS OF CONSCIOUSNESS [None]
